FAERS Safety Report 18142619 (Version 1)
Quarter: 2020Q3

REPORT INFORMATION
  Report Type: Spontaneous
  Country: GB (occurrence: GB)
  Receive Date: 20200812
  Receipt Date: 20200812
  Transmission Date: 20201103
  Serious: Yes (Other)
  Sender: FDA-Public Use
  Company Number: NVSC2020GB222604

PATIENT
  Age: 43 Year
  Sex: Female
  Weight: 61.68 kg

DRUGS (2)
  1. MOMETASONE FUROATE. [Suspect]
     Active Substance: MOMETASONE FUROATE
     Indication: NASAL POLYPS
     Dosage: 4 DF, QD (SPRAYS EACH NOSTRIL)
     Route: 045
     Dates: start: 20200714, end: 20200720
  2. BETNESOL [Concomitant]
     Indication: NASAL POLYPS
     Dosage: UNK
     Route: 065

REACTIONS (4)
  - Paraesthesia [Unknown]
  - Nasal discomfort [Recovering/Resolving]
  - Rhinalgia [Recovered/Resolved]
  - Rhinorrhoea [Unknown]

NARRATIVE: CASE EVENT DATE: 20200714
